FAERS Safety Report 5678734-0 (Version None)
Quarter: 2008Q1

REPORT INFORMATION
  Report Type: 
  Country: None (occurrence: None)
  Receive Date: 20080321
  Receipt Date: 20080307
  Transmission Date: 20080703
  Serious: Yes (Hospitalization)
  Sender: FDA-Public Use
  Company Number: 2006BI001298

PATIENT
  Sex: Female

DRUGS (1)
  1. AVONEX [Suspect]
     Indication: MULTIPLE SCLEROSIS
     Dosage: 30 UG; QW; IM
     Route: 030
     Dates: start: 19960101, end: 20080126

REACTIONS (13)
  - ANKLE FRACTURE [None]
  - BALANCE DISORDER [None]
  - ECONOMIC PROBLEM [None]
  - FALL [None]
  - FIBULA FRACTURE [None]
  - INFECTION [None]
  - JOINT LOCK [None]
  - LOWER LIMB FRACTURE [None]
  - ORTHOSIS USER [None]
  - TIBIA FRACTURE [None]
  - WALKING AID USER [None]
  - WHEELCHAIR USER [None]
  - WOUND INFECTION [None]
